FAERS Safety Report 7667288-5 (Version None)
Quarter: 2011Q3

REPORT INFORMATION
  Report Type: 
  Country: None (occurrence: None)
  Receive Date: 20110806
  Receipt Date: 20110406
  Transmission Date: 20111222
  Serious: No
  Sender: FDA-Public Use
  Company Number: US-ABBOTT-11P-163-0716981-00

PATIENT
  Sex: Male
  Weight: 141.65 kg

DRUGS (12)
  1. FISH OIL [Concomitant]
     Indication: PRODUCT USED FOR UNKNOWN INDICATION
  2. PANTOPRAZOLOF [Concomitant]
     Indication: PRODUCT USED FOR UNKNOWN INDICATION
  3. ASPIRIN [Concomitant]
     Indication: PRODUCT USED FOR UNKNOWN INDICATION
  4. METFORMIN HCL [Concomitant]
     Indication: PRODUCT USED FOR UNKNOWN INDICATION
  5. LEVOTYROXINE [Concomitant]
     Indication: PRODUCT USED FOR UNKNOWN INDICATION
  6. NIASPAN [Suspect]
     Indication: HIGH DENSITY LIPOPROTEIN DECREASED
     Dosage: AT BEDTIME
     Dates: start: 20070101
  7. FLUOXETINE [Concomitant]
     Indication: PRODUCT USED FOR UNKNOWN INDICATION
  8. ESTRAC [Concomitant]
     Indication: PRODUCT USED FOR UNKNOWN INDICATION
  9. PLAVIX [Concomitant]
     Indication: PRODUCT USED FOR UNKNOWN INDICATION
  10. ZETIA [Concomitant]
     Indication: PRODUCT USED FOR UNKNOWN INDICATION
  11. BENAZEPRIL HYDROCHLORIDE [Concomitant]
     Indication: PRODUCT USED FOR UNKNOWN INDICATION
  12. CRESTOR [Concomitant]
     Indication: PRODUCT USED FOR UNKNOWN INDICATION

REACTIONS (7)
  - FEELING HOT [None]
  - PRURITUS [None]
  - PROTEIN URINE PRESENT [None]
  - FLUSHING [None]
  - HIGH DENSITY LIPOPROTEIN DECREASED [None]
  - DIABETES MELLITUS [None]
  - SKIN BURNING SENSATION [None]
